FAERS Safety Report 8682468 (Version 5)
Quarter: 2015Q1

REPORT INFORMATION
  Report Type: Spontaneous
  Country: US (occurrence: US)
  Receive Date: 20120725
  Receipt Date: 20150218
  Transmission Date: 20150721
  Serious: Yes (Life-Threatening, Hospitalization)
  Sender: FDA-Public Use
  Company Number: US-ASTRAZENECA-2012SE48185

PATIENT
  Age: 586 Month
  Sex: Female
  Weight: 92.5 kg

DRUGS (18)
  1. CRESTOR [Suspect]
     Active Substance: ROSUVASTATIN CALCIUM
     Indication: BLOOD CHOLESTEROL INCREASED
     Route: 048
     Dates: start: 2006
  2. CLONIDINE. [Concomitant]
     Active Substance: CLONIDINE
     Indication: BLOOD PRESSURE MANAGEMENT
     Route: 048
     Dates: start: 2009
  3. DILTIAZEM [Concomitant]
     Active Substance: DILTIAZEM
     Indication: HEART RATE IRREGULAR
     Route: 048
     Dates: start: 2011
  4. FERROUS SULFATE [Concomitant]
     Active Substance: FERROUS SULFATE\FERROUS SULFATE, DRIED
     Indication: MINERAL SUPPLEMENTATION
     Route: 048
     Dates: start: 2009
  5. CRESTOR [Suspect]
     Active Substance: ROSUVASTATIN CALCIUM
     Indication: BLOOD TRIGLYCERIDES INCREASED
     Route: 048
     Dates: start: 201007
  6. CRESTOR [Suspect]
     Active Substance: ROSUVASTATIN CALCIUM
     Indication: BLOOD CHOLESTEROL INCREASED
     Route: 048
     Dates: start: 201007
  7. METOPROLOL [Concomitant]
     Active Substance: METOPROLOL
     Indication: BLOOD CHOLESTEROL ABNORMAL
     Dosage: GENERIC FOR LOPRESSOR, 50 MG, EVERY 12 HOURS
     Route: 048
     Dates: start: 2009
  8. DILTIAZEM [Concomitant]
     Active Substance: DILTIAZEM
     Indication: BLOOD CHOLESTEROL ABNORMAL
     Route: 048
     Dates: start: 2011
  9. METOPROLOL [Concomitant]
     Active Substance: METOPROLOL
     Indication: BLOOD CHOLESTEROL ABNORMAL
     Route: 048
  10. VITAMINS [Concomitant]
     Active Substance: VITAMINS
     Indication: VITAMIN SUPPLEMENTATION
     Route: 048
     Dates: start: 2009
  11. DILTVEN [Concomitant]
  12. METOPROLOL SUCCINATE. [Suspect]
     Active Substance: METOPROLOL SUCCINATE
     Indication: BLOOD CHOLESTEROL ABNORMAL
     Route: 048
  13. TRAMADOL HCL [Concomitant]
     Active Substance: TRAMADOL HYDROCHLORIDE
     Indication: MUSCULOSKELETAL CHEST PAIN
     Route: 048
  14. CLONIDINE. [Concomitant]
     Active Substance: CLONIDINE
     Indication: HYPERTENSION
     Route: 048
     Dates: start: 2009
  15. TRAMADOL HCL [Concomitant]
     Active Substance: TRAMADOL HYDROCHLORIDE
     Indication: MUSCULOSKELETAL CHEST PAIN
     Route: 048
     Dates: start: 2009
  16. LIPITOR [Concomitant]
     Active Substance: ATORVASTATIN CALCIUM
  17. CRESTOR [Suspect]
     Active Substance: ROSUVASTATIN CALCIUM
     Indication: BLOOD TRIGLYCERIDES INCREASED
     Route: 048
     Dates: start: 2006
  18. FISH OIL [Concomitant]
     Active Substance: FISH OIL
     Indication: VITAMIN SUPPLEMENTATION
     Route: 048
     Dates: start: 2009

REACTIONS (12)
  - Pain in extremity [Unknown]
  - Pulmonary oedema [Unknown]
  - Intentional product misuse [Unknown]
  - Pain [Unknown]
  - Pigmentation lip [Unknown]
  - Drug dose omission [Unknown]
  - Agitation [Unknown]
  - Headache [Unknown]
  - Hypertension [Unknown]
  - Palpitations [Unknown]
  - Cardiac arrest [Unknown]
  - Joint swelling [Unknown]

NARRATIVE: CASE EVENT DATE: 201312
